FAERS Safety Report 4744481-2 (Version None)
Quarter: 2005Q3

REPORT INFORMATION
  Report Type: 
  Country: None (occurrence: None)
  Receive Date: 20050809
  Receipt Date: 20050728
  Transmission Date: 20060218
  Serious: Yes (Other)
  Sender: FDA-Public Use
  Company Number: 2005107807

PATIENT
  Age: 65 Year
  Sex: Female
  Weight: 63.5036 kg

DRUGS (4)
  1. BENADRYL [Suspect]
     Indication: INSOMNIA
     Dosage: 1 TABLET 3 NIGHTS, ORAL
     Route: 048
     Dates: start: 20050725, end: 20050727
  2. WARFARIN (WARFARIN) [Concomitant]
  3. FUROSEMIDE [Concomitant]
  4. FLUVASTATIN (FLUVASTATIN) [Concomitant]

REACTIONS (6)
  - DISORIENTATION [None]
  - FEELING JITTERY [None]
  - HEART RATE INCREASED [None]
  - HYPOAESTHESIA [None]
  - HYPOAESTHESIA ORAL [None]
  - TREMOR [None]
